FAERS Safety Report 11518663 (Version 1)
Quarter: 2015Q3

REPORT INFORMATION
  Report Type: Spontaneous
  Country: ID (occurrence: ID)
  Receive Date: 20150917
  Receipt Date: 20150917
  Transmission Date: 20151125
  Serious: Yes (Hospitalization, Other)
  Sender: FDA-Public Use
  Company Number: ID-PRESTIUM-2015RN000067

PATIENT
  Age: 0 Year
  Sex: Female
  Weight: 3 kg

DRUGS (2)
  1. ZOVIRAX [Suspect]
     Active Substance: ACYCLOVIR
     Indication: VARICELLA
     Dosage: 400 MG, UNK
     Route: 064
     Dates: start: 20140927
  2. AUGMENTIN [Suspect]
     Active Substance: AMOXICILLIN\CLAVULANATE POTASSIUM
     Indication: PRODUCT USED FOR UNKNOWN INDICATION
     Dosage: 1 G, TID
     Route: 064
     Dates: start: 20140927

REACTIONS (4)
  - Foetal exposure during pregnancy [Unknown]
  - Immune thrombocytopenic purpura [Recovering/Resolving]
  - Heart disease congenital [Unknown]
  - Jaundice [Unknown]

NARRATIVE: CASE EVENT DATE: 20140927
